FAERS Safety Report 15630081 (Version 2)
Quarter: 2018Q4

REPORT INFORMATION
  Report Type: Spontaneous
  Country: US (occurrence: US)
  Receive Date: 20181118
  Receipt Date: 20181120
  Transmission Date: 20190205
  Serious: No
  Sender: FDA-Public Use
  Company Number: US-JNJFOC-20181017853

PATIENT
  Age: 61 Year
  Sex: Male

DRUGS (1)
  1. ERLEADA [Suspect]
     Active Substance: APALUTAMIDE
     Indication: PROSTATE CANCER
     Route: 048
     Dates: start: 20180411

REACTIONS (4)
  - Hypotrichosis [Unknown]
  - Fatigue [Unknown]
  - Low density lipoprotein increased [Unknown]
  - Hypotonia [Unknown]

NARRATIVE: CASE EVENT DATE: 20180501
